FAERS Safety Report 10239754 (Version 2)
Quarter: 2014Q3

REPORT INFORMATION
  Report Type: Spontaneous
  Country: CA (occurrence: CA)
  Receive Date: 20140616
  Receipt Date: 20140826
  Transmission Date: 20150326
  Serious: Yes (Hospitalization)
  Sender: FDA-Public Use
  Company Number: CA-B.I. PHARMACEUTICALS,INC./RIDGEFIELD-2014-BI-26667CN

PATIENT
  Age: 80 Year
  Sex: Male

DRUGS (3)
  1. ASA [Suspect]
     Active Substance: ASPIRIN
     Indication: PRODUCT USED FOR UNKNOWN INDICATION
     Dosage: 81 MG
     Route: 048
     Dates: start: 201110
  2. PRADAXA [Suspect]
     Active Substance: DABIGATRAN ETEXILATE MESYLATE
     Indication: ATRIAL FIBRILLATION
     Dosage: 220 MG
     Route: 048
     Dates: start: 20130423, end: 20140528
  3. TOLOXIN [Concomitant]
     Active Substance: DIGOXIN
     Dosage: 0.125 MG
     Route: 048

REACTIONS (4)
  - Haemorrhage [Unknown]
  - Haemorrhage [Not Recovered/Not Resolved]
  - Peripheral swelling [Unknown]
  - Skin discolouration [Unknown]

NARRATIVE: CASE EVENT DATE: 20140528
